FAERS Safety Report 19754576 (Version 1)
Quarter: 2021Q3

REPORT INFORMATION
  Report Type: Spontaneous
  Country: JP (occurrence: JP)
  Receive Date: 20210827
  Receipt Date: 20210827
  Transmission Date: 20211014
  Serious: Yes (Death, Hospitalization, Other)
  Sender: FDA-Public Use
  Company Number: NVSJ2021JP012615

PATIENT
  Age: 82 Year
  Sex: Male

DRUGS (3)
  1. METGLUCO [Suspect]
     Active Substance: METFORMIN HYDROCHLORIDE
     Indication: PRODUCT USED FOR UNKNOWN INDICATION
     Dosage: 30 DAYS,1000 MG
     Route: 048
  2. EQUMET [Suspect]
     Active Substance: METFORMIN HYDROCHLORIDE\VILDAGLIPTIN
     Indication: PRODUCT USED FOR UNKNOWN INDICATION
     Dosage: 1DF:METFORMIN HYDROCHLORIDE UNKNOWN/ VILDAGLIPTIN 50MG
     Route: 048
  3. ATORVASTATIN [Suspect]
     Active Substance: ATORVASTATIN
     Indication: PRODUCT USED FOR UNKNOWN INDICATION
     Dosage: 10 MG
     Route: 065

REACTIONS (9)
  - Blood pressure decreased [Unknown]
  - Renal impairment [Unknown]
  - Lactic acidosis [Fatal]
  - Altered state of consciousness [Unknown]
  - Hypoglycaemia [Unknown]
  - Dementia [Unknown]
  - Fall [Unknown]
  - Hypothermia [Unknown]
  - Overdose [Fatal]
